FAERS Safety Report 25317498 (Version 2)
Quarter: 2025Q2

REPORT INFORMATION
  Report Type: Spontaneous
  Country: US (occurrence: US)
  Receive Date: 20250515
  Receipt Date: 20250527
  Transmission Date: 20250717
  Serious: Yes (Hospitalization)
  Sender: ROCHE
  Company Number: US-ROCHE-10000278905

PATIENT
  Age: 66 Year
  Sex: Male
  Weight: 48 kg

DRUGS (8)
  1. XOLAIR [Suspect]
     Active Substance: OMALIZUMAB
     Indication: Asthma
     Dosage: INJECT 2ML EVERY 4 WEEKS ?STRENGTH: 300 MG /2 ML
     Route: 058
     Dates: start: 20250224
  2. JARDIANCE [Concomitant]
     Active Substance: EMPAGLIFLOZIN
  3. METOPROLOL [Concomitant]
     Active Substance: METOPROLOL
  4. SINGULAIR [Concomitant]
     Active Substance: MONTELUKAST SODIUM
  5. TRELEGY ELLIPTA [Concomitant]
     Active Substance: FLUTICASONE FUROATE\UMECLIDINIUM BROMIDE\VILANTEROL TRIFENATATE
  6. ALBUTEROL [Concomitant]
     Active Substance: ALBUTEROL
  7. ALBUTEROL [Concomitant]
     Active Substance: ALBUTEROL
  8. EPINEPHRINE [Concomitant]
     Active Substance: EPINEPHRINE

REACTIONS (2)
  - Nasopharyngitis [Unknown]
  - Asthma [Unknown]
